FAERS Safety Report 10039659 (Version 2)
Quarter: 2014Q1

REPORT INFORMATION
  Report Type: Spontaneous
  Country: TW (occurrence: TW)
  Receive Date: 20140326
  Receipt Date: 20140327
  Transmission Date: 20141002
  Serious: Yes (Other)
  Sender: FDA-Public Use
  Company Number: TW-JNJFOC-20140314134

PATIENT
  Age: 52 Year
  Sex: Female
  Weight: 57 kg

DRUGS (8)
  1. SIMPONI [Suspect]
     Indication: RHEUMATOID ARTHRITIS
     Route: 058
     Dates: start: 20131205
  2. METHOTREXATE [Concomitant]
     Indication: RHEUMATOID ARTHRITIS
     Dosage: 7-15MG/DAY
     Route: 065
     Dates: start: 20120719
  3. FOLIC ACID [Concomitant]
     Indication: RHEUMATOID ARTHRITIS
     Route: 065
     Dates: start: 20120719
  4. PREDNISOLONE [Concomitant]
     Indication: RHEUMATOID ARTHRITIS
     Dosage: 5-10MG/DAY
     Route: 065
     Dates: start: 20120705
  5. MEDICON [Concomitant]
     Indication: COUGH
     Route: 065
     Dates: start: 20140320
  6. XANAX [Concomitant]
     Indication: INSOMNIA
     Route: 065
     Dates: start: 20131205
  7. INDIVINA [Concomitant]
     Indication: MENOPAUSE
     Route: 065
     Dates: start: 20131205
  8. LORAPSEUDO [Concomitant]
     Indication: NASAL CONGESTION
     Route: 065
     Dates: start: 20140220

REACTIONS (1)
  - Tuberculosis [Not Recovered/Not Resolved]
